FAERS Safety Report 5412729-7 (Version None)
Quarter: 2007Q3

REPORT INFORMATION
  Report Type: 
  Country: None (occurrence: None)
  Receive Date: 20070813
  Receipt Date: 20070810
  Transmission Date: 20080115
  Serious: Yes (Hospitalization)
  Sender: FDA-Public Use
  Company Number: US-AMGEN-US226721

PATIENT
  Sex: Male
  Weight: 158.4 kg

DRUGS (5)
  1. ENBREL [Suspect]
     Indication: JUVENILE ARTHRITIS
     Route: 058
     Dates: start: 20050601, end: 20070501
  2. PREDNISONE TAB [Concomitant]
     Route: 065
  3. MOBIC [Concomitant]
     Route: 065
  4. ANDROGEL [Concomitant]
     Route: 065
  5. LOPRESSOR [Concomitant]
     Route: 065

REACTIONS (13)
  - CHILLS [None]
  - COUGH [None]
  - DEHYDRATION [None]
  - FELTY'S SYNDROME [None]
  - HYPERHIDROSIS [None]
  - JUVENILE ARTHRITIS [None]
  - MALAISE [None]
  - PAIN [None]
  - PANCYTOPENIA [None]
  - PYREXIA [None]
  - RHEUMATOID ARTHRITIS [None]
  - SINUSITIS [None]
  - WHITE BLOOD CELL COUNT DECREASED [None]
